FAERS Safety Report 6633276-0 (Version None)
Quarter: 2010Q1

REPORT INFORMATION
  Report Type: 
  Country: None (occurrence: None)
  Receive Date: 20100312
  Receipt Date: 20100305
  Transmission Date: 20100710
  Serious: Yes (Hospitalization)
  Sender: FDA-Public Use
  Company Number: FR-PFIZER INC-2010028766

PATIENT
  Age: 16 Year
  Sex: Male

DRUGS (6)
  1. SOLU-MEDROL [Suspect]
     Dosage: UNK
     Dates: start: 20091026, end: 20091026
  2. ACUPAN [Suspect]
     Dosage: UNK
     Dates: start: 20091026, end: 20091026
  3. MIDAZOLAM HCL [Suspect]
     Dosage: 5 MG, UNK
     Route: 060
     Dates: start: 20091026, end: 20091026
  4. ULTIVA [Suspect]
     Dosage: UNK
     Dates: start: 20091026, end: 20091026
  5. SCANDICAINE [Concomitant]
     Indication: LOCAL ANAESTHESIA
     Dosage: UNK
  6. DELTAZINE [Concomitant]
     Indication: LOCAL ANAESTHESIA
     Dosage: UNK

REACTIONS (2)
  - GENERALISED ERYTHEMA [None]
  - MALAISE [None]
